FAERS Safety Report 6910335-6 (Version None)
Quarter: 2010Q3

REPORT INFORMATION
  Report Type: 
  Country: None (occurrence: None)
  Receive Date: 20100806
  Receipt Date: 20100730
  Transmission Date: 20110219
  Serious: Yes (Other)
  Sender: FDA-Public Use
  Company Number: US-PFIZER INC-2010072621

PATIENT
  Sex: Female

DRUGS (3)
  1. LIPITOR [Suspect]
     Indication: BLOOD CHOLESTEROL INCREASED
     Dosage: 20 MG, DAILY
     Route: 048
  2. LIPITOR [Suspect]
     Dosage: 10 MG, DAILY
     Route: 048
     Dates: end: 20100501
  3. COZAAR [Concomitant]
     Indication: HYPERTENSION
     Dosage: 50 MG, 1X/DAY
     Route: 048

REACTIONS (3)
  - MUSCLE SPASMS [None]
  - MUSCLE TIGHTNESS [None]
  - PAIN [None]
